FAERS Safety Report 7635006-2 (Version None)
Quarter: 2011Q3

REPORT INFORMATION
  Report Type: 
  Country: None (occurrence: None)
  Receive Date: 20110718
  Receipt Date: 20110708
  Transmission Date: 20111222
  Serious: Yes (Hospitalization)
  Sender: FDA-Public Use
  Company Number: BR-001750

PATIENT
  Sex: Male
  Weight: 24.5 kg

DRUGS (9)
  1. TERBUTALINE [Concomitant]
  2. CAPTOPRIL [Concomitant]
  3. OXACILLIN [Concomitant]
  4. BUDESONIDE [Concomitant]
  5. FUROSEMIDE [Concomitant]
  6. HYDROCORTISONE [Concomitant]
  7. DIGOXIN [Concomitant]
  8. NAGLAZYME [Suspect]
     Indication: PRODUCT USED FOR UNKNOWN INDICATION
     Dosage: (20 ML 1X/WEEK INTRAVENOUS DRIP)
     Route: 041
     Dates: end: 20110501
  9. CEFTRIAXONE [Concomitant]

REACTIONS (3)
  - PNEUMONIA [None]
  - ASTHMA [None]
  - CARDIAC FAILURE CONGESTIVE [None]
